FAERS Safety Report 5195207-2 (Version None)
Quarter: 2006Q4

REPORT INFORMATION
  Report Type: 
  Country: None (occurrence: None)
  Receive Date: 20061229
  Receipt Date: 20061003
  Transmission Date: 20070319
  Serious: Yes (Disabling, Other)
  Sender: FDA-Public Use
  Company Number: US-PFIZER INC-2006121623

PATIENT
  Sex: Female
  Weight: 108.9 kg

DRUGS (6)
  1. LIPITOR [Suspect]
     Indication: BLOOD CHOLESTEROL INCREASED
     Route: 048
     Dates: start: 20060912, end: 20060920
  2. ANTI-DIABETICS [Concomitant]
  3. ACCUPRIL [Concomitant]
     Dosage: DAILY DOSE:40MG
  4. INDAPAMIDE [Concomitant]
  5. INSULIN [Concomitant]
  6. SYNTHROID [Concomitant]

REACTIONS (11)
  - BEDRIDDEN [None]
  - DISABILITY [None]
  - DRUG TOXICITY [None]
  - MUSCLE SPASMS [None]
  - MUSCULAR WEAKNESS [None]
  - MYALGIA [None]
  - OEDEMA PERIPHERAL [None]
  - PARALYSIS [None]
  - POLYMYALGIA RHEUMATICA [None]
  - PYREXIA [None]
  - WALKING AID USER [None]
